FAERS Safety Report 4683017-1 (Version None)
Quarter: 2005Q2

REPORT INFORMATION
  Report Type: 
  Country: None (occurrence: None)
  Receive Date: 20050606
  Receipt Date: 20050311
  Transmission Date: 20051028
  Serious: Yes (Disabling)
  Sender: FDA-Public Use
  Company Number: GB-MERCK-0503GBR00108

PATIENT
  Age: 68 Year
  Sex: Female

DRUGS (4)
  1. FOSAMAX [Suspect]
     Indication: OSTEOPOROSIS PROPHYLAXIS
     Route: 048
     Dates: start: 20020503, end: 20050309
  2. TEMAZEPAM [Concomitant]
     Indication: SLEEP DISORDER THERAPY
     Route: 065
     Dates: start: 19980101
  3. CETIRIZINE HYDROCHLORIDE [Concomitant]
     Indication: HYPERSENSITIVITY
     Route: 065
     Dates: start: 19990101
  4. ALBUTEROL [Concomitant]
     Route: 055
     Dates: start: 20030101

REACTIONS (3)
  - ARTHRALGIA [None]
  - BLOOD CHOLINESTERASE ABNORMAL [None]
  - ROTATOR CUFF SYNDROME [None]
